FAERS Safety Report 8068724-5 (Version None)
Quarter: 2012Q1

REPORT INFORMATION
  Report Type: 
  Country: None (occurrence: None)
  Receive Date: 20120124
  Receipt Date: 20111202
  Transmission Date: 20120608
  Serious: No
  Sender: FDA-Public Use
  Company Number: US-AMGEN-USASP2011053331

PATIENT
  Age: 85 Year
  Sex: Female

DRUGS (7)
  1. BIOTIN [Concomitant]
     Indication: ALOPECIA
     Dosage: 1 DF, UNK
     Dates: start: 20110101
  2. ATENOLOL [Concomitant]
     Indication: CARDIAC DISORDER
     Dosage: UNK
  3. BIOTIN [Concomitant]
  4. HUMALOG [Concomitant]
     Indication: DIABETES MELLITUS
     Dosage: UNK
  5. CALCIUM W/VITAMIN D [Concomitant]
     Dosage: UNK
  6. HUMULIN R [Concomitant]
     Indication: DIABETES MELLITUS
     Dosage: UNK
  7. PROLIA [Suspect]
     Indication: OSTEOPOROSIS POSTMENOPAUSAL
     Dosage: UNK UNK, Q6MO
     Dates: start: 20110101

REACTIONS (4)
  - ERYTHEMA [None]
  - RASH MACULAR [None]
  - TRICHORRHEXIS [None]
  - ALOPECIA [None]
